FAERS Safety Report 4549595-8 (Version None)
Quarter: 2005Q1

REPORT INFORMATION
  Report Type: 
  Country: None (occurrence: None)
  Receive Date: 20050111
  Receipt Date: 20041231
  Transmission Date: 20050727
  Serious: Yes (Other)
  Sender: FDA-Public Use
  Company Number: US-JNJFOC-20050100696

PATIENT
  Age: 37 Year
  Sex: Male

DRUGS (1)
  1. DURAGESIC [Suspect]
     Indication: DRUG USE FOR UNKNOWN INDICATION
     Route: 062

REACTIONS (6)
  - AGITATION [None]
  - CLUMSINESS [None]
  - INTENTIONAL MISUSE [None]
  - LOGORRHOEA [None]
  - MIOSIS [None]
  - SOMNOLENCE [None]
